FAERS Safety Report 7708769-5 (Version None)
Quarter: 2011Q3

REPORT INFORMATION
  Report Type: 
  Country: None (occurrence: None)
  Receive Date: 20110825
  Receipt Date: 20110822
  Transmission Date: 20111222
  Serious: Yes (Other)
  Sender: FDA-Public Use
  Company Number: AU-SANOFI-AVENTIS-2011SA053616

PATIENT
  Age: 79 Year
  Sex: Male

DRUGS (5)
  1. INDAPAMIDE [Suspect]
     Indication: HYPERTENSION
     Route: 048
     Dates: start: 20020101
  2. LOVAZA [Concomitant]
  3. MSM [Concomitant]
  4. GLUCOSAMINE [Concomitant]
  5. LISINOPRIL [Concomitant]

REACTIONS (4)
  - BLOOD PARATHYROID HORMONE INCREASED [None]
  - PARATHYROID TUMOUR BENIGN [None]
  - HYPERPARATHYROIDISM [None]
  - HYPERCALCAEMIA [None]
